FAERS Safety Report 18401632 (Version 1)
Quarter: 2020Q4

REPORT INFORMATION
  Report Type: Other
  Country: GB (occurrence: GB)
  Receive Date: 20201020
  Receipt Date: 20201020
  Transmission Date: 20210114
  Serious: Yes (Other)
  Sender: FDA-Public Use
  Company Number: GB-GLENMARK PHARMACEUTICALS-2020GMK050025

PATIENT

DRUGS (7)
  1. ROSUVASTATIN CALCIUM. [Suspect]
     Active Substance: ROSUVASTATIN CALCIUM
     Indication: PRODUCT USED FOR UNKNOWN INDICATION
     Dosage: 5 MILLIGRAM, HS (EACH NIGHT AFTER A MEAL)
     Route: 065
     Dates: start: 20200902
  2. OTOMIZE [DEXAMETHASONE\NEOMYCIN SULFATE] [Concomitant]
     Active Substance: DEXAMETHASONE\NEOMYCIN SULFATE
     Indication: PRODUCT USED FOR UNKNOWN INDICATION
     Dosage: 3 DOSAGE FORM, OD (SPRAY)
     Route: 065
     Dates: start: 20200706, end: 20200711
  3. CIPROFLOXACIN. [Concomitant]
     Active Substance: CIPROFLOXACIN
     Indication: PRODUCT USED FOR UNKNOWN INDICATION
     Dosage: 6 GTT DROPS, OD
     Route: 065
     Dates: start: 20200629, end: 20200706
  4. MOMETASONE [Concomitant]
     Active Substance: MOMETASONE
     Indication: PRODUCT USED FOR UNKNOWN INDICATION
     Dosage: 4 DOSAGE FORM, OD (BEFORE BEDTIME AS EXPLAINED)
     Route: 045
     Dates: start: 20200902
  5. IBUPROFEN. [Concomitant]
     Active Substance: IBUPROFEN
     Indication: PRODUCT USED FOR UNKNOWN INDICATION
     Dosage: APPLY 3-4 TIMES/DAY
     Route: 065
     Dates: start: 20200629, end: 20200727
  6. SIMVASTATIN. [Concomitant]
     Active Substance: SIMVASTATIN
     Indication: PRODUCT USED FOR UNKNOWN INDICATION
     Dosage: 1 DOSAGE FORM, HS (NIGHT)
     Route: 065
     Dates: start: 20200228, end: 20200902
  7. CLARITHROMYCIN. [Concomitant]
     Active Substance: CLARITHROMYCIN
     Indication: PRODUCT USED FOR UNKNOWN INDICATION
     Dosage: 10 MILLILITER, (12 HOURS) (5 ML SPOON)
     Route: 065
     Dates: start: 20200706, end: 20200713

REACTIONS (1)
  - Swollen tongue [Recovered/Resolved]

NARRATIVE: CASE EVENT DATE: 20200917
